FAERS Safety Report 16143709 (Version 1)
Quarter: 2019Q2

REPORT INFORMATION
  Report Type: Spontaneous
  Country: CA (occurrence: CA)
  Receive Date: 20190401
  Receipt Date: 20190401
  Transmission Date: 20190711
  Serious: Yes (Other)
  Sender: FDA-Public Use
  Company Number: CA-PFIZER INC-2019130904

PATIENT
  Age: 21 Year
  Sex: Female

DRUGS (4)
  1. DEPO-PROVERA [Suspect]
     Active Substance: MEDROXYPROGESTERONE ACETATE
     Dosage: 150 MG/ML
     Dates: start: 20001216
  2. FLAGYL [Concomitant]
     Active Substance: METRONIDAZOLE\METRONIDAZOLE HYDROCHLORIDE
     Dosage: 500 MG, UNK
     Dates: start: 20010905
  3. NOVAMOXIN [Concomitant]
     Active Substance: AMOXICILLIN
     Dosage: 250 MG, UNK
     Dates: start: 20010910
  4. APO-AMOXI [Concomitant]
     Active Substance: AMOXICILLIN
     Dosage: 250 MG, UNK
     Dates: start: 20020320

REACTIONS (4)
  - Fall [Unknown]
  - Osteopenia [Unknown]
  - Foot fracture [Recovering/Resolving]
  - Osteoporosis [Unknown]

NARRATIVE: CASE EVENT DATE: 20010701
